FAERS Safety Report 5811697-3 (Version None)
Quarter: 2008Q3

REPORT INFORMATION
  Report Type: 
  Country: None (occurrence: None)
  Receive Date: 20080716
  Receipt Date: 20080708
  Transmission Date: 20090109
  Serious: Yes (Life-Threatening, Hospitalization, Other)
  Sender: FDA-Public Use
  Company Number: A0727705A

PATIENT
  Age: 10 Year
  Sex: Female

DRUGS (5)
  1. ADVAIR DISKUS 100/50 [Suspect]
     Indication: ASTHMA
     Route: 055
     Dates: start: 20050101, end: 20071101
  2. FLOVENT [Suspect]
     Indication: ASTHMA
     Dosage: 1PUFF TWICE PER DAY
     Route: 055
     Dates: start: 20071101
  3. XOPENEX [Concomitant]
  4. OMNICEF [Concomitant]
  5. PREDNISONE TAB [Concomitant]

REACTIONS (9)
  - ASTHMA [None]
  - COUGH [None]
  - DYSPNOEA [None]
  - HYPOTONIA [None]
  - MYALGIA [None]
  - MYOPATHY [None]
  - STATUS ASTHMATICUS [None]
  - TACHYPNOEA [None]
  - WHEEZING [None]
